FAERS Safety Report 21823732 (Version 5)
Quarter: 2023Q2

REPORT INFORMATION
  Report Type: Spontaneous
  Country: US (occurrence: US)
  Receive Date: 20230105
  Receipt Date: 20230530
  Transmission Date: 20230721
  Serious: No
  Sender: FDA-Public Use
  Company Number: US-PFIZER INC-202300004201

PATIENT
  Age: 72 Year
  Sex: Female

DRUGS (12)
  1. IBRANCE [Suspect]
     Active Substance: PALBOCICLIB
     Indication: Breast cancer
     Dosage: 100 MG, CYCLIC ONCE DAILY FOR 21 DAYS ON AND 7 DAYS OFF
     Dates: start: 202104
  2. LEVOTHYROXINE [Concomitant]
     Active Substance: LEVOTHYROXINE
     Indication: Hypothyroidism
     Dosage: 75 MG, 1X/DAY
     Dates: start: 2006
  3. METOPROLOL [Concomitant]
     Active Substance: METOPROLOL
     Indication: Blood pressure measurement
     Dosage: 25 MG, 2X/DAY
     Dates: start: 2021
  4. WARFARIN [Concomitant]
     Active Substance: WARFARIN
     Indication: Thrombosis
     Dosage: 5 MG 3 TIMES A WEEK AND 2.5 4 TIMES A WEEK
     Dates: start: 202104
  5. ANASTROZOLE [Concomitant]
     Active Substance: ANASTROZOLE
     Indication: Breast cancer
     Dosage: 1 MG, DAILY
     Dates: start: 2021
  6. MIRALAX [Concomitant]
     Active Substance: POLYETHYLENE GLYCOL 3350
     Indication: Constipation
     Dosage: 1 CUPFUL DAILY
     Dates: start: 2021
  7. MIRALAX [Concomitant]
     Active Substance: POLYETHYLENE GLYCOL 3350
     Indication: Hernia
  8. COLACE [Concomitant]
     Active Substance: DOCUSATE SODIUM
     Indication: Constipation
     Dosage: UNK, 1 DAILY
     Dates: start: 2021
  9. COLACE [Concomitant]
     Active Substance: DOCUSATE SODIUM
     Indication: Hernia
  10. FIBER [Concomitant]
     Indication: Constipation
     Dosage: 1 TSP DAILY
     Dates: start: 2021
  11. FIBER [Concomitant]
     Indication: Hernia
  12. LOSARTAN [Concomitant]
     Active Substance: LOSARTAN
     Indication: Blood pressure measurement
     Dosage: 100 MG, 1X/DAY
     Dates: start: 2006

REACTIONS (1)
  - Ligament sprain [Recovering/Resolving]

NARRATIVE: CASE EVENT DATE: 20220925
